FAERS Safety Report 6221612-9 (Version None)
Quarter: 2009Q2

REPORT INFORMATION
  Report Type: 
  Country: None (occurrence: None)
  Receive Date: 20090610
  Receipt Date: 20090605
  Transmission Date: 20091009
  Serious: Yes (Other)
  Sender: FDA-Public Use
  Company Number: GR-ABBOTT-09P-066-0578281-00

PATIENT
  Age: 60 Year
  Sex: Male

DRUGS (1)
  1. DEPAKENE [Suspect]
     Indication: DRUG USE FOR UNKNOWN INDICATION
     Dosage: 5-10 TABLETS
     Route: 048

REACTIONS (3)
  - CONVULSION [None]
  - OVERDOSE [None]
  - SOMNOLENCE [None]
